FAERS Safety Report 19977730 (Version 1)
Quarter: 2021Q4

REPORT INFORMATION
  Report Type: Spontaneous
  Country: US (occurrence: US)
  Receive Date: 20211020
  Receipt Date: 20211020
  Transmission Date: 20220304
  Serious: No
  Sender: FDA-Public Use
  Company Number: US-ALLERGAN-2118248US

PATIENT
  Sex: Male

DRUGS (3)
  1. LINZESS [Suspect]
     Active Substance: LINACLOTIDE
     Indication: Constipation
     Dosage: 290 ?G, QD
     Route: 048
     Dates: start: 2019
  2. UNSPECIFIED INGREDIENT [Concomitant]
     Active Substance: UNSPECIFIED INGREDIENT
  3. MILK OF MAGNESIA [Concomitant]
     Active Substance: MAGNESIUM HYDROXIDE
     Indication: Constipation

REACTIONS (6)
  - Bowel movement irregularity [Not Recovered/Not Resolved]
  - Product dose omission issue [Unknown]
  - Product administration error [Unknown]
  - Product storage error [Unknown]
  - Off label use [Unknown]
  - Drug ineffective for unapproved indication [Unknown]
